FAERS Safety Report 25173916 (Version 1)
Quarter: 2025Q2

REPORT INFORMATION
  Report Type: Spontaneous
  Country: JP (occurrence: JP)
  Receive Date: 20250408
  Receipt Date: 20250408
  Transmission Date: 20250717
  Serious: Yes (Other)
  Sender: RECORDATI
  Company Number: JP-ORPHANEU-2025002358

PATIENT
  Age: 61 Year
  Sex: Male

DRUGS (1)
  1. ISTURISA [Suspect]
     Active Substance: OSILODROSTAT PHOSPHATE
     Indication: Hyperadrenocorticism

REACTIONS (3)
  - Pancytopenia [Recovered/Resolved]
  - Pancreatic neuroendocrine tumour [Unknown]
  - Klinefelter^s syndrome [Unknown]
